FAERS Safety Report 18528371 (Version 1)
Quarter: 2020Q4

REPORT INFORMATION
  Report Type: Spontaneous
  Country: US (occurrence: US)
  Receive Date: 20201120
  Receipt Date: 20201120
  Transmission Date: 20210114
  Serious: No
  Sender: FDA-Public Use
  Company Number: US-BAYER-2020-245695

PATIENT
  Age: 68 Year
  Sex: Female

DRUGS (3)
  1. PANTOPRAZOLE [Concomitant]
     Active Substance: PANTOPRAZOLE
  2. MIRALAX [Suspect]
     Active Substance: POLYETHYLENE GLYCOL 3350
     Indication: GASTROINTESTINAL DISORDER
     Dosage: HALF OF THE WHITE SECTION
     Route: 048
     Dates: start: 20201109, end: 20201110
  3. PAROXETINE. [Suspect]
     Active Substance: PAROXETINE

REACTIONS (2)
  - Incorrect dose administered [Unknown]
  - Palpitations [Unknown]

NARRATIVE: CASE EVENT DATE: 202011
